FAERS Safety Report 12169155 (Version 3)
Quarter: 2016Q2

REPORT INFORMATION
  Report Type: Spontaneous
  Country: JP (occurrence: JP)
  Receive Date: 20160310
  Receipt Date: 20160601
  Transmission Date: 20160815
  Serious: Yes (Hospitalization, Other)
  Sender: FDA-Public Use
  Company Number: PHJP2016JP005077

PATIENT
  Age: 74 Year
  Sex: Male

DRUGS (2)
  1. IMATINIB [Suspect]
     Active Substance: IMATINIB
     Indication: GASTROINTESTINAL STROMAL TUMOUR
     Dosage: 400 MG, UNK
     Route: 048
     Dates: start: 201206
  2. IMATINIB [Suspect]
     Active Substance: IMATINIB
     Indication: METASTASES TO PERITONEUM
     Dosage: UNK
     Route: 048

REACTIONS (7)
  - Gastrointestinal stromal tumour [Unknown]
  - Abdominal pain [Unknown]
  - Haemorrhagic ascites [Unknown]
  - Tumour rupture [Recovered/Resolved]
  - Malignant neoplasm progression [Unknown]
  - Drug resistance [Unknown]
  - Intra-abdominal haemorrhage [Unknown]

NARRATIVE: CASE EVENT DATE: 201504
